FAERS Safety Report 11487311 (Version 3)
Quarter: 2015Q4

REPORT INFORMATION
  Report Type: Report from Study
  Country: JP (occurrence: JP)
  Receive Date: 20150909
  Receipt Date: 20151216
  Transmission Date: 20160304
  Serious: Yes (Other)
  Sender: FDA-Public Use
  Company Number: JP-OTSUKA-2015_008499

PATIENT
  Age: 52 Year
  Sex: Male
  Weight: 73.6 kg

DRUGS (10)
  1. TOLVAPTAN [Suspect]
     Active Substance: TOLVAPTAN
     Indication: CONGENITAL CYSTIC KIDNEY DISEASE
     Dosage: 15 MG, QD(IN THE EVENING)
     Route: 048
     Dates: start: 20141006, end: 20141110
  2. TOLVAPTAN [Suspect]
     Active Substance: TOLVAPTAN
     Dosage: 45 MG, QD
     Route: 048
     Dates: start: 20141007, end: 20141110
  3. PARIET [Concomitant]
     Active Substance: RABEPRAZOLE SODIUM
     Indication: PRODUCT USED FOR UNKNOWN INDICATION
     Dosage: 10 MG, DAILY DOSE
     Route: 048
     Dates: end: 20150427
  4. KREMEZIN [Concomitant]
     Active Substance: ACTIVATED CHARCOAL
     Indication: PRODUCT USED FOR UNKNOWN INDICATION
     Dosage: 4 G, DAILY DOSE
     Route: 048
     Dates: end: 20150303
  5. EPADEL-S [Concomitant]
     Active Substance: ICOSAPENT ETHYL
     Indication: PRODUCT USED FOR UNKNOWN INDICATION
     Dosage: 1.8 G, DAILY DOSE
     Route: 048
     Dates: end: 20150427
  6. AVAPRO [Concomitant]
     Active Substance: IRBESARTAN
     Indication: PRODUCT USED FOR UNKNOWN INDICATION
     Dosage: 100 MG, DAILY DOSE
     Route: 048
     Dates: end: 20150427
  7. SAMSCA 30 MG [Suspect]
     Active Substance: TOLVAPTAN
     Dosage: 30 MG, QD(IN THE EVENING)
     Route: 048
     Dates: start: 20141111, end: 20150303
  8. ZYLORIC [Concomitant]
     Active Substance: ALLOPURINOL
     Indication: PRODUCT USED FOR UNKNOWN INDICATION
     Dosage: 100 MG, DAILY DOSE
     Route: 048
     Dates: end: 20150427
  9. SAMSCA 30 MG [Suspect]
     Active Substance: TOLVAPTAN
     Indication: CONGENITAL CYSTIC KIDNEY DISEASE
     Dosage: 60 MG, QD(IN THE MORNING)
     Route: 048
     Dates: start: 20141111, end: 20150303
  10. URINORM [Suspect]
     Active Substance: BENZBROMARONE
     Indication: PRODUCT USED FOR UNKNOWN INDICATION
     Dosage: 25 MG, DAILY DOSE
     Route: 048
     Dates: end: 20150324

REACTIONS (5)
  - Thirst [Recovered/Resolved]
  - Insomnia [Recovered/Resolved]
  - Nocturia [Unknown]
  - Liver disorder [Recovering/Resolving]
  - Hypernatraemia [Recovered/Resolved]

NARRATIVE: CASE EVENT DATE: 20141008
